FAERS Safety Report 14873116 (Version 1)
Quarter: 2018Q2

REPORT INFORMATION
  Report Type: Spontaneous
  Country: US (occurrence: US)
  Receive Date: 20180510
  Receipt Date: 20180510
  Transmission Date: 20180711
  Serious: Yes (Hospitalization)
  Sender: FDA-Public Use
  Company Number: US-CONCORDIA PHARMACEUTICALS INC.-GSH201805-001468

PATIENT
  Age: 39 Year
  Sex: Female

DRUGS (6)
  1. HYDROXYCHLOROQUINE [Suspect]
     Active Substance: HYDROXYCHLOROQUINE
     Indication: SYSTEMIC LUPUS ERYTHEMATOSUS
     Route: 065
     Dates: start: 1999
  2. MIDODRINE [Concomitant]
     Active Substance: MIDODRINE
  3. FLUDROCORTISONE [Concomitant]
     Active Substance: FLUDROCORTISONE
  4. LEVOTHYROXINE. [Concomitant]
     Active Substance: LEVOTHYROXINE
  5. VALPROIC ACID. [Concomitant]
     Active Substance: VALPROIC ACID
  6. PREDNISONE. [Concomitant]
     Active Substance: PREDNISONE

REACTIONS (15)
  - Systolic dysfunction [Unknown]
  - Presyncope [Unknown]
  - Ejection fraction decreased [Unknown]
  - Mitral valve incompetence [Unknown]
  - Cardiotoxicity [Unknown]
  - Conduction disorder [Unknown]
  - Cardiac murmur [Unknown]
  - Sinus bradycardia [Unknown]
  - Chest pain [Unknown]
  - Ventricular hypertrophy [Unknown]
  - Bundle branch block right [Unknown]
  - Ventricular hypokinesia [Unknown]
  - Atrioventricular block first degree [Unknown]
  - Toxicity to various agents [Unknown]
  - Troponin increased [Unknown]
